FAERS Safety Report 4802397-7 (Version None)
Quarter: 2005Q4

REPORT INFORMATION
  Report Type: 
  Country: None (occurrence: None)
  Receive Date: 20051014
  Receipt Date: 20050208
  Transmission Date: 20060501
  Serious: Yes (Other)
  Sender: FDA-Public Use
  Company Number: 2004068323

PATIENT
  Age: 70 Year
  Sex: Female

DRUGS (15)
  1. NEURONTIN [Suspect]
     Indication: BACK DISORDER
     Dosage: 900 MG (300 MG, 3 IN 1 D), ORAL
     Route: 048
     Dates: start: 20040501, end: 20040801
  2. NEURONTIN [Suspect]
     Indication: NEURALGIA
     Dosage: 900 MG (300 MG, 3 IN 1 D), ORAL
     Route: 048
     Dates: start: 20040501, end: 20040801
  3. ATORVASTATIN CALCIUM [Concomitant]
  4. TRIMETHOPRIM [Concomitant]
  5. METOPROLOL SUCCINATE [Concomitant]
  6. TRAZODONE HCL [Concomitant]
  7. LEVOTHYROXINE SODIUM [Concomitant]
  8. RABEPRAZOLE SODIUM [Concomitant]
  9. KARVEA HCT (HYDROCHLOROTHIAZIDE, IRBESARTAN) [Concomitant]
  10. ROFECOXIB [Concomitant]
  11. METAXALONE [Concomitant]
  12. HYDROCHLOROTHIAZIDE [Concomitant]
  13. RISEDRONATE SODIUM [Concomitant]
  14. PROPACET 100 [Concomitant]
  15. CALCIUM GLUCONATE [Concomitant]

REACTIONS (5)
  - DEPRESSION [None]
  - FEELING OF DESPAIR [None]
  - SUICIDAL IDEATION [None]
  - TEARFULNESS [None]
  - WEIGHT INCREASED [None]
